FAERS Safety Report 7019594-5 (Version None)
Quarter: 2010Q3

REPORT INFORMATION
  Report Type: 
  Country: None (occurrence: None)
  Receive Date: 20100928
  Receipt Date: 20100928
  Transmission Date: 20110219
  Serious: Yes (Other)
  Sender: FDA-Public Use
  Company Number: None

PATIENT
  Age: 65 Year
  Sex: Male
  Weight: 68.0396 kg

DRUGS (1)
  1. NIASPAN [Suspect]

REACTIONS (1)
  - INTERCEPTED DRUG DISPENSING ERROR [None]
